FAERS Safety Report 14747535 (Version 4)
Quarter: 2018Q4

REPORT INFORMATION
  Report Type: Report from Study
  Country: US (occurrence: US)
  Receive Date: 20180411
  Receipt Date: 20181231
  Transmission Date: 20190204
  Serious: Yes (Hospitalization)
  Sender: FDA-Public Use
  Company Number: US-ACTELION-A-NJ2018-170340

PATIENT
  Age: 88 Year
  Sex: Female
  Weight: 68.27 kg

DRUGS (10)
  1. NITRO [Concomitant]
     Active Substance: NITROGLYCERIN
     Dosage: 50 MG, PRN
     Dates: start: 201809
  2. OPSUMIT [Suspect]
     Active Substance: MACITENTAN
     Indication: PULMONARY HYPERTENSION
     Dosage: 10 MG, QD
     Route: 048
     Dates: start: 201712
  3. TYLENOL [Concomitant]
     Active Substance: ACETAMINOPHEN
     Dosage: 500 MG, PRN
  4. MIDODRINE [Concomitant]
     Active Substance: MIDODRINE
     Dosage: 2.5 MG, TID
  5. FLUDROCORTISONE [Concomitant]
     Active Substance: FLUDROCORTISONE
     Dosage: 0.1 MG, QD
  6. ALLEGRA [Concomitant]
     Active Substance: FEXOFENADINE HYDROCHLORIDE
     Dosage: UNK, PRN
  7. OXYGEN. [Concomitant]
     Active Substance: OXYGEN
  8. CRESTOR [Concomitant]
     Active Substance: ROSUVASTATIN CALCIUM
     Dosage: 10 MG, QD
  9. POTASSIUM [Concomitant]
     Active Substance: POTASSIUM
     Dosage: 10 MG, TID
  10. PLAVIX [Concomitant]
     Active Substance: CLOPIDOGREL BISULFATE
     Dosage: 75 MG, QD

REACTIONS (10)
  - Conjunctivitis [Unknown]
  - Hypersensitivity [Unknown]
  - Myocardial infarction [Recovering/Resolving]
  - Dyspnoea [Unknown]
  - Coronary arterial stent insertion [Unknown]
  - Chest pain [Unknown]
  - Acute coronary syndrome [Unknown]
  - Adverse event [Unknown]
  - Oxygen consumption increased [Not Recovered/Not Resolved]
  - Dysphonia [Recovering/Resolving]

NARRATIVE: CASE EVENT DATE: 201801
